FAERS Safety Report 17599225 (Version 1)
Quarter: 2020Q1

REPORT INFORMATION
  Report Type: Spontaneous
  Country: DE (occurrence: DE)
  Receive Date: 20200330
  Receipt Date: 20200330
  Transmission Date: 20200409
  Serious: Yes (Other)
  Sender: FDA-Public Use
  Company Number: DE-TORRENT-00017063

PATIENT
  Age: 55 Year
  Sex: Female

DRUGS (2)
  1. LEVOFLOXACIN. [Suspect]
     Active Substance: LEVOFLOXACIN
     Indication: HELICOBACTER GASTRITIS
     Dosage: 1-0-1
     Dates: start: 201904, end: 2019
  2. XUSAL [Concomitant]
     Active Substance: LEVOCETIRIZINE DIHYDROCHLORIDE
     Indication: URTICARIA CHRONIC
     Dosage: UNKNOWN

REACTIONS (17)
  - Tendon pain [Recovered/Resolved]
  - Initial insomnia [Recovered/Resolved]
  - Dysaesthesia [Recovering/Resolving]
  - Impaired work ability [Recovered/Resolved]
  - Myalgia [Recovered/Resolved]
  - Rotator cuff syndrome [Recovered/Resolved]
  - Thinking abnormal [Recovered/Resolved]
  - Osteoarthritis [Recovered/Resolved]
  - Joint range of motion decreased [Recovered/Resolved]
  - Insomnia [Recovered/Resolved]
  - Pain [Recovered/Resolved]
  - Depressed mood [Recovered/Resolved]
  - Pain in extremity [Recovered/Resolved]
  - Middle insomnia [Recovered/Resolved]
  - Depression [Recovered/Resolved]
  - Cervicobrachial syndrome [Recovered/Resolved]
  - Emotional distress [Recovered/Resolved]

NARRATIVE: CASE EVENT DATE: 2019
